FAERS Safety Report 4915242-6 (Version None)
Quarter: 2006Q1

REPORT INFORMATION
  Report Type: 
  Country: None (occurrence: None)
  Receive Date: 20060217
  Receipt Date: 20060208
  Transmission Date: 20060701
  Serious: Yes (Other)
  Sender: FDA-Public Use
  Company Number: 2006GB00235

PATIENT
  Age: 57 Year
  Sex: Male

DRUGS (3)
  1. OMEPRAZOLE [Suspect]
     Indication: DYSPEPSIA
     Route: 048
     Dates: start: 20060126, end: 20060202
  2. RABEPRAZOLE SODIUM [Suspect]
     Indication: DYSPEPSIA
     Route: 048
     Dates: start: 20060116, end: 20060202
  3. ATENOLOL [Concomitant]
     Route: 065
     Dates: start: 20010503

REACTIONS (4)
  - GINGIVAL DISORDER [None]
  - GLOSSODYNIA [None]
  - LIP DRY [None]
  - VISION BLURRED [None]
